FAERS Safety Report 5213164-7 (Version None)
Quarter: 2007Q1

REPORT INFORMATION
  Report Type: 
  Country: None (occurrence: None)
  Receive Date: 20070116
  Receipt Date: 20070111
  Transmission Date: 20070707
  Serious: Yes (Death)
  Sender: FDA-Public Use
  Company Number: S07-USA-00150-01

PATIENT
  Sex: Male

DRUGS (2)
  1. LEXAPRO [Suspect]
  2. VENLAFAXINE HCL [Concomitant]

REACTIONS (1)
  - COMPLETED SUICIDE [None]
